FAERS Safety Report 9880582 (Version 1)
Quarter: 2014Q1

REPORT INFORMATION
  Report Type: Spontaneous
  Country: DE (occurrence: None)
  Receive Date: 20140205
  Receipt Date: 20140205
  Transmission Date: 20141002
  Serious: Yes (Hospitalization, Other)
  Sender: FDA-Public Use
  Company Number: 1401-0211

PATIENT
  Age: 84 Year
  Sex: Female

DRUGS (3)
  1. EYLEA (AFLIBERCEPT) (INJECTION) (AFLIBERCEPT) [Suspect]
     Indication: AGE-RELATED MACULAR DEGENERATION
     Route: 031
     Dates: start: 201309
  2. TENORMIN (ATENOLOL) [Concomitant]
  3. RYTHMODAN (DISOPYRAMIDE) [Concomitant]

REACTIONS (3)
  - Blood pressure increased [None]
  - Dizziness [None]
  - Vision blurred [None]
